FAERS Safety Report 7003095-4 (Version None)
Quarter: 2010Q3

REPORT INFORMATION
  Report Type: 
  Country: None (occurrence: None)
  Receive Date: 20100920
  Receipt Date: 20100113
  Transmission Date: 20110219
  Serious: No
  Sender: FDA-Public Use
  Company Number: US-ASTRAZENECA-2010SE01599

PATIENT
  Age: 64 Year
  Sex: Female
  Weight: 90.7 kg

DRUGS (3)
  1. SEROQUEL XR [Suspect]
     Indication: MULTIPLE SCLEROSIS
     Route: 048
     Dates: start: 20051201
  2. PREMARIN [Concomitant]
     Route: 065
  3. OXYBUTYNIN CHLORIDE [Concomitant]
     Route: 065

REACTIONS (4)
  - CONSTIPATION [None]
  - DIARRHOEA [None]
  - SOMNOLENCE [None]
  - WEIGHT INCREASED [None]
